FAERS Safety Report 17577287 (Version 1)
Quarter: 2020Q1

REPORT INFORMATION
  Report Type: Spontaneous
  Country: US (occurrence: US)
  Receive Date: 20200324
  Receipt Date: 20200324
  Transmission Date: 20200409
  Serious: No
  Sender: FDA-Public Use
  Company Number: US-SCILEX PHARMACEUTICALS INC.-2020SCX00012

PATIENT
  Age: 51 Year
  Sex: Male

DRUGS (2)
  1. ZTLIDO [Suspect]
     Active Substance: LIDOCAINE
     Indication: POST HERPETIC NEURALGIA
     Dosage: 1 DOSAGE UNIT, 1X/DAY FOR 12 HOURS
     Route: 061
  2. ZTLIDO [Suspect]
     Active Substance: LIDOCAINE
     Dosage: 3 DOSAGE UNITS, 1X/DAY FOR 12 HOURS
     Route: 061

REACTIONS (1)
  - Drug ineffective [Recovered/Resolved]
